FAERS Safety Report 24010334 (Version 3)
Quarter: 2024Q3

REPORT INFORMATION
  Report Type: Report from Study
  Country: CA (occurrence: CA)
  Receive Date: 20240625
  Receipt Date: 20240810
  Transmission Date: 20241017
  Serious: Yes (Hospitalization)
  Sender: SANOFI AVENTIS
  Company Number: CA-SA-SAC20240212001620

PATIENT
  Age: 8 Month
  Sex: Male
  Weight: 8 kg

DRUGS (4)
  1. DUPILUMAB [Suspect]
     Active Substance: DUPILUMAB
     Indication: Dermatitis atopic
     Dosage: 200 MG, 1X
     Route: 058
     Dates: start: 20240201, end: 20240201
  2. DUPILUMAB [Suspect]
     Active Substance: DUPILUMAB
     Dosage: 200 MG, Q4W
     Route: 058
     Dates: start: 20240229
  3. HYDROCORTISONE VALERATE [Concomitant]
     Active Substance: HYDROCORTISONE VALERATE
     Dosage: UNK
     Route: 065
  4. BETADERM [Concomitant]
     Active Substance: BETAMETHASONE VALERATE
     Dosage: UNK
     Route: 065

REACTIONS (13)
  - Dehydration [Recovered/Resolved]
  - Pyrexia [Unknown]
  - Cough [Unknown]
  - Ear infection [Recovered/Resolved]
  - Constipation [Unknown]
  - Rash macular [Unknown]
  - Fatigue [Not Recovered/Not Resolved]
  - Rhinorrhoea [Recovered/Resolved]
  - Nasopharyngitis [Recovering/Resolving]
  - Rhinorrhoea [Recovering/Resolving]
  - Dermatitis atopic [Unknown]
  - Inappropriate schedule of product administration [Unknown]
  - Therapeutic response decreased [Unknown]

NARRATIVE: CASE EVENT DATE: 20240101
